FAERS Safety Report 4956555-1 (Version None)
Quarter: 2006Q1

REPORT INFORMATION
  Report Type: 
  Country: None (occurrence: None)
  Receive Date: 20060329
  Receipt Date: 20050427
  Transmission Date: 20060701
  Serious: Yes (Hospitalization, Disabling)
  Sender: FDA-Public Use
  Company Number: US-MERCK-0504USA04778

PATIENT
  Age: 44 Year
  Sex: Male
  Weight: 92 kg

DRUGS (2)
  1. VIOXX [Suspect]
     Indication: BACK PAIN
     Route: 048
     Dates: start: 20010101, end: 20010101
  2. VIOXX [Suspect]
     Route: 048
     Dates: start: 20010201, end: 20010101

REACTIONS (4)
  - ANGER [None]
  - ANGINA PECTORIS [None]
  - DEPRESSION [None]
  - MYOCARDIAL INFARCTION [None]
